FAERS Safety Report 9357792 (Version 1)
Quarter: 2013Q2

REPORT INFORMATION
  Report Type: Spontaneous
  Country: FR (occurrence: FR)
  Receive Date: 20130620
  Receipt Date: 20130620
  Transmission Date: 20140414
  Serious: Yes (Hospitalization)
  Sender: FDA-Public Use
  Company Number: FR-SANOFI-AVENTIS-2013SA061084

PATIENT
  Age: 75 Year
  Sex: Female

DRUGS (8)
  1. RIFADINE [Suspect]
     Indication: INFECTION
     Dosage: STRENGTH: 2%
     Route: 065
     Dates: start: 20120114, end: 20120203
  2. FUCIDINE [Suspect]
     Indication: INFECTION
     Dosage: STRENGTH: 500 MG?DOSE REDUCED TO 250 MG 3 TIMES DAILY
     Route: 065
     Dates: start: 20120114, end: 201202
  3. DEBRIDAT [Concomitant]
  4. PARIET [Concomitant]
  5. SPASFON [Concomitant]
  6. SYMBICORT [Concomitant]
  7. VANCOMYCINE [Concomitant]
     Dates: start: 20120113, end: 20120114
  8. FOSFOCINE [Concomitant]
     Dates: start: 20120113, end: 20120114

REACTIONS (9)
  - Cholestasis [Recovering/Resolving]
  - Jaundice [Recovering/Resolving]
  - Blood bilirubin increased [Recovering/Resolving]
  - Bilirubin conjugated increased [Recovering/Resolving]
  - Aspartate aminotransferase increased [Recovering/Resolving]
  - Alanine aminotransferase increased [Recovering/Resolving]
  - Blood alkaline phosphatase increased [Recovering/Resolving]
  - Gamma-glutamyltransferase increased [Recovering/Resolving]
  - Prothrombin time prolonged [Recovering/Resolving]
